FAERS Safety Report 4891220-0 (Version None)
Quarter: 2006Q1

REPORT INFORMATION
  Report Type: 
  Country: None (occurrence: None)
  Receive Date: 20060125
  Receipt Date: 20051213
  Transmission Date: 20060701
  Serious: Yes (Hospitalization)
  Sender: FDA-Public Use
  Company Number: HQWYE026515DEC05

PATIENT
  Sex: Female

DRUGS (2)
  1. ENBREL [Suspect]
     Indication: PSORIASIS
     Route: 058
     Dates: start: 20051005, end: 20051125
  2. ENBREL [Suspect]
     Indication: PSORIATIC ARTHROPATHY

REACTIONS (5)
  - CONDITION AGGRAVATED [None]
  - LYMPHADENOPATHY [None]
  - OVARIAN CYST [None]
  - PSORIASIS [None]
  - UTERINE LEIOMYOMA [None]
